FAERS Safety Report 5236724-6 (Version None)
Quarter: 2007Q1

REPORT INFORMATION
  Report Type: 
  Country: None (occurrence: None)
  Receive Date: 20061208
  Receipt Date: 20050523
  Transmission Date: 20070707
  Serious: Yes (Other)
  Sender: FDA-Public Use
  Company Number: 2005UW07887

PATIENT
  Age: 72 Year
  Sex: Female
  Weight: 87.543 kg

DRUGS (4)
  1. CRESTOR [Suspect]
     Indication: BLOOD CHOLESTEROL INCREASED
     Dosage: 10 MG PO
     Route: 048
  2. WATER PILLS [Concomitant]
  3. THYROID TAB [Concomitant]
  4. ANTIDEPRESSANT [Concomitant]

REACTIONS (4)
  - DRY MOUTH [None]
  - INSOMNIA [None]
  - PHARYNGOLARYNGEAL PAIN [None]
  - SINUS OPERATION [None]
